FAERS Safety Report 7777744-7 (Version None)
Quarter: 2011Q3

REPORT INFORMATION
  Report Type: 
  Country: None (occurrence: None)
  Receive Date: 20110926
  Receipt Date: 20110916
  Transmission Date: 20111222
  Serious: Yes (Hospitalization, Other)
  Sender: FDA-Public Use
  Company Number: BR-BIOGENIDEC-2010BI019015

PATIENT
  Sex: Female

DRUGS (7)
  1. DRAMIN [Concomitant]
     Indication: PRODUCT USED FOR UNKNOWN INDICATION
  2. DIGESAN [Concomitant]
     Indication: PROPHYLAXIS
  3. PANTOPRAZOLE [Concomitant]
     Indication: PROPHYLAXIS
  4. TRAMADOL HYDROCHLORIDE [Concomitant]
     Indication: FIBROMYALGIA
  5. AVONEX [Suspect]
     Indication: MULTIPLE SCLEROSIS
     Route: 030
     Dates: start: 20060823
  6. LEVOTHYROXINE SODIUM [Concomitant]
     Indication: HYPOTHYROIDISM
  7. IMMUNE GLOBULIN NOS [Concomitant]
     Indication: MULTIPLE SCLEROSIS
     Route: 042

REACTIONS (18)
  - TOOTHACHE [None]
  - VOMITING [None]
  - CONVULSION [None]
  - EYE PAIN [None]
  - MALAISE [None]
  - FALL [None]
  - PAIN IN JAW [None]
  - MULTIPLE SCLEROSIS RELAPSE [None]
  - IMMUNE SYSTEM DISORDER [None]
  - MOBILITY DECREASED [None]
  - PRURITUS ALLERGIC [None]
  - HEADACHE [None]
  - FEELING HOT [None]
  - FACIAL BONES FRACTURE [None]
  - NAUSEA [None]
  - PAIN [None]
  - PHOTOSENSITIVITY REACTION [None]
  - FEELING COLD [None]
